FAERS Safety Report 8318768-0 (Version None)
Quarter: 2012Q2

REPORT INFORMATION
  Report Type: 
  Country: None (occurrence: None)
  Receive Date: 20120427
  Receipt Date: 20120420
  Transmission Date: 20120825
  Serious: Yes (Other)
  Sender: FDA-Public Use
  Company Number: US-ABBOTT-12P-163-0924671-00

PATIENT
  Age: 66 Year
  Sex: Female

DRUGS (7)
  1. HUMIRA [Suspect]
     Dosage: EOW, INTERRUPTED FOR SURGERY
  2. ENTOCORT EC [Concomitant]
     Indication: PRODUCT USED FOR UNKNOWN INDICATION
  3. LORTAB [Concomitant]
     Indication: PAIN
     Dosage: 7.5/500 MG, PRN
  4. OMEPRAZOLE ER [Concomitant]
     Indication: PRODUCT USED FOR UNKNOWN INDICATION
  5. AMBIEN [Concomitant]
     Indication: INSOMNIA
     Dosage: AT BEDTIME
  6. HUMIRA [Suspect]
     Indication: CROHN'S DISEASE
     Dates: start: 20120417
  7. OMETRAVOLE DR [Concomitant]
     Indication: RESPIRATORY DISORDER

REACTIONS (4)
  - GASTROINTESTINAL OEDEMA [None]
  - CROHN'S DISEASE [None]
  - GASTROINTESTINAL PAIN [None]
  - DIARRHOEA [None]
